FAERS Safety Report 5518415-7 (Version None)
Quarter: 2007Q4

REPORT INFORMATION
  Report Type: 
  Country: None (occurrence: None)
  Receive Date: 20071113
  Receipt Date: 20071108
  Transmission Date: 20080405
  Serious: Yes (Other)
  Sender: FDA-Public Use
  Company Number: GXKR2007DE09172

PATIENT
  Sex: Female

DRUGS (4)
  1. CARBOPLATIN [Suspect]
     Dosage: INTRAVENOUS
     Route: 042
     Dates: start: 20070620
  2. GABAPENTIN [Suspect]
     Dosage: ORAL
     Route: 048
  3. TAXOL [Suspect]
     Indication: FALLOPIAN TUBE CANCER
     Dosage: CYCLICAL, INTRAVENOUS
     Route: 042
     Dates: start: 20070620, end: 20071004
  4. RANITIDINE HCL [Suspect]
     Indication: PROPHYLACTIC CHEMOTHERAPY
     Dosage: 300 MG, CYCLICAL
     Dates: start: 20070620, end: 20071004

REACTIONS (10)
  - ABDOMINAL PAIN UPPER [None]
  - ARTHRALGIA [None]
  - DYSGEUSIA [None]
  - FEELING ABNORMAL [None]
  - FEELING COLD [None]
  - HYPOAESTHESIA [None]
  - MUSCULOSKELETAL DISCOMFORT [None]
  - NAIL DISORDER [None]
  - NEUROTOXICITY [None]
  - PERIPHERAL COLDNESS [None]
